FAERS Safety Report 10549403 (Version 1)
Quarter: 2014Q4

REPORT INFORMATION
  Report Type: Spontaneous
  Country: JP (occurrence: JP)
  Receive Date: 20141028
  Receipt Date: 20141028
  Transmission Date: 20150529
  Serious: Yes (Death)
  Sender: FDA-Public Use
  Company Number: JP-TEVA-517635ISR

PATIENT
  Age: 51 Year
  Sex: Male
  Weight: 48 kg

DRUGS (8)
  1. LITHIUM [Suspect]
     Active Substance: LITHIUM CARBONATE
     Dosage: 800MG
     Route: 065
     Dates: end: 20130131
  2. BIPERIDEN [Concomitant]
     Active Substance: BIPERIDEN
     Dosage: 6 MILLIGRAM DAILY;
     Route: 065
  3. RISPERIDONE. [Suspect]
     Active Substance: RISPERIDONE
     Dosage: 6MG
     Route: 065
     Dates: end: 20130131
  4. HALOPERIDOL. [Suspect]
     Active Substance: HALOPERIDOL
     Dosage: 9 MILLIGRAM DAILY;
     Route: 065
  5. VALPROIC ACID. [Concomitant]
     Active Substance: VALPROIC ACID
     Dosage: 600MG
     Route: 065
     Dates: end: 20130131
  6. LITHIUM [Suspect]
     Active Substance: LITHIUM CARBONATE
     Dosage: 600 MILLIGRAM DAILY;
     Route: 065
     Dates: end: 20130131
  7. ZOTEPINE [Suspect]
     Active Substance: ZOTEPINE
     Dosage: 150 MILLIGRAM DAILY;
     Route: 065
     Dates: end: 20130131
  8. FLUPHENAZINE [Suspect]
     Active Substance: FLUPHENAZINE
     Route: 030
     Dates: end: 20130212

REACTIONS (2)
  - Respiratory failure [Fatal]
  - Neuroleptic malignant syndrome [Fatal]

NARRATIVE: CASE EVENT DATE: 20130214
